FAERS Safety Report 8876571 (Version 1)
Quarter: 2012Q4

REPORT INFORMATION
  Report Type: 
  Country: US (occurrence: US)
  Receive Date: 20121023
  Receipt Date: 20121023
  Transmission Date: 20130627
  Serious: Yes (Other)
  Sender: FDA-Public Use
  Company Number: US-ASTELLAS-2012US006136

PATIENT
  Sex: Male
  Weight: 66 kg

DRUGS (2)
  1. PROGRAF [Suspect]
     Indication: RENAL TRANSPLANT
     Dosage: 1.5 mg, UID/QD
     Route: 048
     Dates: start: 20110628
  2. CELLCEPT                           /01275102/ [Concomitant]
     Indication: PRODUCT USED FOR UNKNOWN INDICATION
     Dosage: 500 mg, bid
     Route: 048

REACTIONS (9)
  - Renal tubular necrosis [Recovered/Resolved]
  - Graft dysfunction [Recovered/Resolved]
  - Hyperkalaemia [Unknown]
  - Neutropenia [Recovered/Resolved]
  - Pneumonia [Unknown]
  - Leukopenia [Unknown]
  - Diarrhoea [Unknown]
  - Hepatic enzyme increased [Unknown]
  - Fracture [Unknown]
